FAERS Safety Report 17994330 (Version 1)
Quarter: 2020Q3

REPORT INFORMATION
  Report Type: Spontaneous
  Country: US (occurrence: US)
  Receive Date: 20200708
  Receipt Date: 20200708
  Transmission Date: 20201103
  Serious: No
  Sender: FDA-Public Use
  Company Number: US-PFIZER INC-2020261034

PATIENT
  Age: 67 Year
  Sex: Female
  Weight: 90.72 kg

DRUGS (1)
  1. FLUCONAZOLE. [Suspect]
     Active Substance: FLUCONAZOLE
     Indication: URINARY TRACT INFECTION
     Dosage: 150 MG
     Route: 048
     Dates: start: 20200702, end: 20200702

REACTIONS (3)
  - Pruritus [Recovering/Resolving]
  - Drug hypersensitivity [Unknown]
  - Urticaria [Recovered/Resolved]

NARRATIVE: CASE EVENT DATE: 20200702
